FAERS Safety Report 22258231 (Version 1)
Quarter: 2023Q2

REPORT INFORMATION
  Report Type: Spontaneous
  Country: US (occurrence: None)
  Receive Date: 20230427
  Receipt Date: 20230427
  Transmission Date: 20230722
  Serious: Yes (Other)
  Sender: FDA-Public Use
  Company Number: 2023A092215

PATIENT
  Age: 827 Month

DRUGS (2)
  1. CALQUENCE [Suspect]
     Active Substance: ACALABRUTINIB
     Route: 048
     Dates: start: 20221016, end: 20221129
  2. COVID BOOSTER [Concomitant]

REACTIONS (5)
  - Tachycardia [Recovered/Resolved]
  - Arteriosclerosis [Unknown]
  - Embolism [Unknown]
  - Memory impairment [Recovered/Resolved]
  - Cognitive disorder [Recovered/Resolved]

NARRATIVE: CASE EVENT DATE: 20221001
